FAERS Safety Report 8786408 (Version 1)
Quarter: 2012Q4

REPORT INFORMATION
  Report Type: Spontaneous
  Country: TR (occurrence: None)
  Receive Date: 20120905
  Receipt Date: 20120905
  Transmission Date: 20130627
  Serious: Yes (Other)
  Sender: FDA-Public Use
  Company Number: 1400085

PATIENT
  Age: 6 Year
  Sex: Male

DRUGS (1)
  1. VANCOMYCIN HYDROCHLORIDE [Suspect]
     Indication: MENINGITIS

REACTIONS (5)
  - Renal tubular necrosis [None]
  - Drug administration error [None]
  - Abdominal pain [None]
  - Kidney enlargement [None]
  - Nephropathy toxic [None]
